FAERS Safety Report 13258382 (Version 1)
Quarter: 2017Q1

REPORT INFORMATION
  Report Type: Spontaneous
  Country: US (occurrence: US)
  Receive Date: 20170222
  Receipt Date: 20170222
  Transmission Date: 20170428
  Serious: No
  Sender: FDA-Public Use
  Company Number: US-JNJFOC-20170210642

PATIENT
  Age: 7 Decade
  Sex: Female
  Weight: 50.8 kg

DRUGS (2)
  1. ZYRTEC [Suspect]
     Active Substance: CETIRIZINE HYDROCHLORIDE
     Route: 048
  2. ZYRTEC [Suspect]
     Active Substance: CETIRIZINE HYDROCHLORIDE
     Indication: SEASONAL ALLERGY
     Dosage: 1/2 TABLET FOR ABOUT A YEAR
     Route: 048
     Dates: end: 20170208

REACTIONS (3)
  - Product lot number issue [Unknown]
  - Wrong technique in product usage process [Recovered/Resolved]
  - Tongue discomfort [Recovered/Resolved]
